FAERS Safety Report 9880397 (Version 1)
Quarter: 2014Q1

REPORT INFORMATION
  Report Type: Spontaneous
  Country: US (occurrence: US)
  Receive Date: 20140207
  Receipt Date: 20140207
  Transmission Date: 20141002
  Serious: Yes (Hospitalization)
  Sender: FDA-Public Use
  Company Number: US-ROCHE-1343379

PATIENT
  Age: 76 Year
  Sex: Male

DRUGS (2)
  1. CAPECITABINE [Suspect]
     Indication: ADENOCARCINOMA GASTRIC
     Route: 048
  2. CARBOPLATIN [Concomitant]
     Indication: ADENOCARCINOMA GASTRIC
     Route: 065

REACTIONS (1)
  - Dermatomyositis [Recovering/Resolving]
